FAERS Safety Report 23680751 (Version 1)
Quarter: 2024Q1

REPORT INFORMATION
  Report Type: Report from Study
  Country: PH (occurrence: PH)
  Receive Date: 20240328
  Receipt Date: 20240328
  Transmission Date: 20240409
  Serious: Yes (Death)
  Sender: FDA-Public Use
  Company Number: PH-002147023-NVSC2024PH064489

PATIENT
  Age: 73 Year
  Sex: Female

DRUGS (1)
  1. NILOTINIB [Suspect]
     Active Substance: NILOTINIB
     Indication: Product used for unknown indication
     Dosage: 200 MG, QD (TAKE 4 TABS DAILY)
     Route: 048
     Dates: start: 20221001

REACTIONS (1)
  - Cerebrovascular accident [Fatal]
